FAERS Safety Report 7927293-8 (Version None)
Quarter: 2011Q4

REPORT INFORMATION
  Report Type: 
  Country: None (occurrence: None)
  Receive Date: 20111118
  Receipt Date: 20111108
  Transmission Date: 20120403
  Serious: No
  Sender: FDA-Public Use
  Company Number: PHEH2011US03632

PATIENT
  Sex: Female

DRUGS (2)
  1. TASIGNA [Suspect]
     Indication: CHRONIC MYELOID LEUKAEMIA
     Dosage: 300 MG, BID
     Route: 048
     Dates: start: 20110901
  2. TASIGNA [Suspect]
     Dosage: 150 MG, BID
     Route: 048

REACTIONS (9)
  - DIARRHOEA [None]
  - MYALGIA [None]
  - ABDOMINAL PAIN UPPER [None]
  - DECREASED APPETITE [None]
  - INSOMNIA [None]
  - SWELLING [None]
  - DEPRESSION [None]
  - BONE PAIN [None]
  - PYREXIA [None]
